FAERS Safety Report 6250242-8 (Version None)
Quarter: 2009Q2

REPORT INFORMATION
  Report Type: 
  Country: None (occurrence: None)
  Receive Date: 20090626
  Receipt Date: 20090626
  Transmission Date: 20091009
  Serious: Yes (Hospitalization)
  Sender: FDA-Public Use
  Company Number: None

PATIENT
  Age: 38 Year
  Sex: Male
  Weight: 98 kg

DRUGS (1)
  1. VALPROIC ACID [Suspect]
     Indication: BIPOLAR I DISORDER
     Dates: start: 20090316, end: 20090417

REACTIONS (3)
  - PANCREATITIS [None]
  - PERITONEAL EFFUSION [None]
  - RETROPERITONEAL EFFUSION [None]
